FAERS Safety Report 9278808 (Version 1)
Quarter: 2013Q2

REPORT INFORMATION
  Report Type: Spontaneous
  Country: IN (occurrence: IN)
  Receive Date: 20130508
  Receipt Date: 20130508
  Transmission Date: 20140414
  Serious: Yes (Other)
  Sender: FDA-Public Use
  Company Number: PHHY2013IN043278

PATIENT
  Age: 60 Year
  Sex: Male

DRUGS (2)
  1. CIPROFLOXACIN [Suspect]
     Route: 048
  2. CIPROFLOXACIN [Suspect]

REACTIONS (9)
  - Drug eruption [Unknown]
  - Skin lesion [Unknown]
  - Blister [Unknown]
  - Pruritus generalised [Unknown]
  - Lip erosion [Unknown]
  - Scab [Unknown]
  - Conjunctival hyperaemia [Unknown]
  - Eye swelling [Unknown]
  - Skin burning sensation [Unknown]
